FAERS Safety Report 13647537 (Version 4)
Quarter: 2017Q3

REPORT INFORMATION
  Report Type: Spontaneous
  Country: CA (occurrence: CA)
  Receive Date: 20170613
  Receipt Date: 20170811
  Transmission Date: 20171127
  Serious: Yes (Other)
  Sender: FDA-Public Use
  Company Number: CA-BEH-2017081091

PATIENT
  Age: 42 Year
  Sex: Female

DRUGS (4)
  1. ALBUREX [Suspect]
     Active Substance: ALBUMIN HUMAN
     Indication: NECROTISING FASCIITIS
     Dosage: 500 ML, TOT
     Route: 065
     Dates: start: 20160926, end: 20160926
  2. PRIVIGEN [Suspect]
     Active Substance: HUMAN IMMUNOGLOBULIN G
     Indication: NECROTISING FASCIITIS
     Dosage: 40 G, TOT
     Route: 065
     Dates: start: 20160926, end: 20160926
  3. PRIVIGEN [Suspect]
     Active Substance: HUMAN IMMUNOGLOBULIN G
     Dosage: 20 G, TOT
     Route: 065
     Dates: start: 20160926, end: 20160926
  4. METHADONE [Concomitant]
     Active Substance: METHADONE HYDROCHLORIDE

REACTIONS (7)
  - Tachycardia [Unknown]
  - Hypoxia [Unknown]
  - Throat irritation [Unknown]
  - Hypertension [Unknown]
  - Tachypnoea [Unknown]
  - Chills [Unknown]
  - Febrile nonhaemolytic transfusion reaction [Unknown]

NARRATIVE: CASE EVENT DATE: 20160926
